FAERS Safety Report 8618373-2 (Version None)
Quarter: 2012Q3

REPORT INFORMATION
  Report Type: 
  Country: None (occurrence: None)
  Receive Date: 20120824
  Receipt Date: 20120820
  Transmission Date: 20120928
  Serious: No
  Sender: FDA-Public Use
  Company Number: US-BIOGENIDEC-2012BI032416

PATIENT
  Sex: Female

DRUGS (2)
  1. ALTERIL [Concomitant]
     Indication: SOMNOLENCE
  2. TYSABRI [Suspect]
     Indication: MULTIPLE SCLEROSIS
     Route: 042
     Dates: start: 20120418

REACTIONS (3)
  - SENSITIVITY OF TEETH [None]
  - MYOPIA [None]
  - FATIGUE [None]
